FAERS Safety Report 6107187-3 (Version None)
Quarter: 2009Q1

REPORT INFORMATION
  Report Type: 
  Country: None (occurrence: None)
  Receive Date: 20090309
  Receipt Date: 20090206
  Transmission Date: 20090719
  Serious: No
  Sender: FDA-Public Use
  Company Number: US-BAYER-200912805NA

PATIENT
  Age: 41 Year
  Sex: Female

DRUGS (3)
  1. BETASERON [Suspect]
     Indication: MULTIPLE SCLEROSIS
     Route: 058
     Dates: start: 20081201
  2. BETASERON [Suspect]
     Dosage: TOTAL DAILY DOSE: 4 MIU
     Route: 058
     Dates: start: 20081201
  3. BETASERON [Suspect]
     Dosage: TOTAL DAILY DOSE: 8 MIU
     Route: 058
     Dates: start: 20090101, end: 20090129

REACTIONS (5)
  - ASTHENIA [None]
  - INJECTION SITE MASS [None]
  - MUSCLE TIGHTNESS [None]
  - MUSCULAR WEAKNESS [None]
  - PAIN [None]
